FAERS Safety Report 18263954 (Version 2)
Quarter: 2020Q4

REPORT INFORMATION
  Report Type: Spontaneous
  Country: US (occurrence: US)
  Receive Date: 20200914
  Receipt Date: 20201006
  Transmission Date: 20210113
  Serious: No
  Sender: FDA-Public Use
  Company Number: US-PFIZER INC-2020353263

PATIENT
  Age: 47 Year
  Sex: Female
  Weight: 77.11 kg

DRUGS (3)
  1. TIZANIDINE. [Concomitant]
     Active Substance: TIZANIDINE
     Indication: FIBROMYALGIA
     Dosage: 4 MG, AS NEEDED [ONE TABLET TWICE A DAY AS NEEDED]
  2. LYRICA [Suspect]
     Active Substance: PREGABALIN
     Indication: FIBROMYALGIA
     Dosage: 150 MG, 3X/DAY (150 MG. ONE CAPSULE THREE TIMES DAILY BY MOUTH/SIG: 1 CAPSULE THREE TIMES A DAY 30 D
     Route: 048
  3. MELOXICAM. [Concomitant]
     Active Substance: MELOXICAM
     Indication: FIBROMYALGIA
     Dosage: 50 MG, AS NEEDED [ONCE A DAY AS NEEDED]

REACTIONS (1)
  - Therapeutic product effect incomplete [Unknown]
